FAERS Safety Report 9600870 (Version 1)
Quarter: 2013Q4

REPORT INFORMATION
  Report Type: Spontaneous
  Country: US (occurrence: US)
  Receive Date: 20131004
  Receipt Date: 20131004
  Transmission Date: 20140711
  Serious: No
  Sender: FDA-Public Use
  Company Number: US-AMGEN-USASP2013038719

PATIENT
  Age: 62 Year
  Sex: Female

DRUGS (10)
  1. ENBREL [Suspect]
     Indication: PRODUCT USED FOR UNKNOWN INDICATION
     Dosage: 50 MG, QWK
     Route: 058
  2. PROCRIT [Concomitant]
     Dosage: INJECTION
  3. METFORMIN [Concomitant]
     Dosage: 850 MG, UNK
  4. LISINOPRIL [Concomitant]
     Dosage: 5 MG, UNK
  5. METHOTREXATE [Concomitant]
     Dosage: 2.5 MG, UNK
  6. ENALAPRIL [Concomitant]
     Dosage: 5 MG, UNK
  7. SIMVASTATIN [Concomitant]
     Dosage: 5 MG, UNK
  8. VITAMIN D                          /00107901/ [Concomitant]
     Dosage: 1000 UNIT, UNK
  9. MULTIVITAMINS, PLAIN [Concomitant]
     Dosage: UNK
  10. IRON [Concomitant]
     Dosage: UNK

REACTIONS (1)
  - Injection site pain [Unknown]
